FAERS Safety Report 6445286-7 (Version None)
Quarter: 2009Q4

REPORT INFORMATION
  Report Type: 
  Country: None (occurrence: None)
  Receive Date: 20091118
  Receipt Date: 20091109
  Transmission Date: 20100525
  Serious: Yes (Hospitalization, Other)
  Sender: FDA-Public Use
  Company Number: BR-ABBOTT-09P-020-0604662-00

PATIENT
  Sex: Female
  Weight: 54 kg

DRUGS (17)
  1. HUMIRA [Suspect]
     Indication: RHEUMATOID ARTHRITIS
     Route: 058
     Dates: start: 20080101, end: 20090801
  2. HUMIRA [Suspect]
     Route: 058
     Dates: start: 20091027
  3. TRAMAL [Suspect]
     Indication: MALAISE
     Route: 042
  4. TRAMAL [Suspect]
     Indication: VOMITING
  5. TRAMAL [Suspect]
     Indication: DYSPNOEA
  6. TRAMAL [Suspect]
     Indication: VISUAL IMPAIRMENT
  7. METHOTREXATE [Concomitant]
     Indication: RHEUMATOID ARTHRITIS
     Route: 048
     Dates: start: 20060101, end: 20090901
  8. FOLIC ACID [Concomitant]
     Indication: RHEUMATOID ARTHRITIS
     Route: 048
     Dates: start: 20060101, end: 20090901
  9. ACTONEL [Concomitant]
     Indication: OSTEOPOROSIS
     Route: 048
     Dates: start: 20070101
  10. ARAVA [Concomitant]
     Indication: RHEUMATOID ARTHRITIS
     Dates: start: 20080101
  11. LIVIAL [Concomitant]
     Indication: HORMONE THERAPY
     Dates: start: 19690101
  12. MOTILIUM [Concomitant]
     Indication: GASTROOESOPHAGEAL REFLUX DISEASE
     Route: 048
     Dates: start: 20060101
  13. LANSOPRAZOLE [Concomitant]
     Indication: GASTRIC DISORDER
     Route: 048
     Dates: start: 19790101
  14. CALCIUM PHOSPHATE/COLECALCIFEROL (OSTEONUTRI) [Concomitant]
     Indication: OSTEOPOROSIS
     Route: 048
     Dates: start: 20070101
  15. MELOXICAM [Concomitant]
     Indication: DRUG USE FOR UNKNOWN INDICATION
  16. CEFALIV [Concomitant]
     Indication: HEADACHE
     Route: 048
     Dates: start: 20090701
  17. LABIRIN [Concomitant]
     Indication: LABYRINTHITIS
     Route: 048

REACTIONS (9)
  - BLOOD PRESSURE INCREASED [None]
  - DYSPNOEA [None]
  - FEELING ABNORMAL [None]
  - HYPOTENSION [None]
  - IMMUNODEFICIENCY [None]
  - MALAISE [None]
  - SYNCOPE [None]
  - VISUAL IMPAIRMENT [None]
  - VOMITING [None]
